FAERS Safety Report 4355126-8 (Version None)
Quarter: 2004Q2

REPORT INFORMATION
  Report Type: 
  Country: None (occurrence: None)
  Receive Date: 20040504
  Receipt Date: 20040422
  Transmission Date: 20050107
  Serious: Yes (Death)
  Sender: FDA-Public Use
  Company Number: US-JNJFOC-20040301567

PATIENT
  Age: 73 Year
  Sex: Female
  Weight: 52.1637 kg

DRUGS (41)
  1. REMICADE [Suspect]
     Indication: ANKYLOSING SPONDYLITIS
     Dosage: SEE IMAGE
     Route: 042
     Dates: start: 20010501
  2. REMICADE [Suspect]
     Indication: RHEUMATOID ARTHRITIS
     Dosage: SEE IMAGE
     Route: 042
     Dates: start: 20010501
  3. REMICADE [Suspect]
     Indication: UVEITIS
     Dosage: SEE IMAGE
     Route: 042
     Dates: start: 20010501
  4. REMICADE [Suspect]
     Indication: ANKYLOSING SPONDYLITIS
     Dosage: SEE IMAGE
     Route: 042
     Dates: start: 20030513
  5. REMICADE [Suspect]
     Indication: RHEUMATOID ARTHRITIS
     Dosage: SEE IMAGE
     Route: 042
     Dates: start: 20030513
  6. REMICADE [Suspect]
     Indication: UVEITIS
     Dosage: SEE IMAGE
     Route: 042
     Dates: start: 20030513
  7. REMICADE [Suspect]
     Indication: ANKYLOSING SPONDYLITIS
     Dosage: SEE IMAGE
     Route: 042
     Dates: start: 20030527
  8. REMICADE [Suspect]
     Indication: RHEUMATOID ARTHRITIS
     Dosage: SEE IMAGE
     Route: 042
     Dates: start: 20030527
  9. REMICADE [Suspect]
     Indication: UVEITIS
     Dosage: SEE IMAGE
     Route: 042
     Dates: start: 20030527
  10. REMICADE [Suspect]
     Indication: ANKYLOSING SPONDYLITIS
     Dosage: SEE IMAGE
     Route: 042
     Dates: start: 20030624
  11. REMICADE [Suspect]
     Indication: RHEUMATOID ARTHRITIS
     Dosage: SEE IMAGE
     Route: 042
     Dates: start: 20030624
  12. REMICADE [Suspect]
     Indication: UVEITIS
     Dosage: SEE IMAGE
     Route: 042
     Dates: start: 20030624
  13. REMICADE [Suspect]
     Indication: ANKYLOSING SPONDYLITIS
     Dosage: SEE IMAGE
     Route: 042
     Dates: start: 20030723
  14. REMICADE [Suspect]
     Indication: RHEUMATOID ARTHRITIS
     Dosage: SEE IMAGE
     Route: 042
     Dates: start: 20030723
  15. REMICADE [Suspect]
     Indication: UVEITIS
     Dosage: SEE IMAGE
     Route: 042
     Dates: start: 20030723
  16. REMICADE [Suspect]
     Indication: ANKYLOSING SPONDYLITIS
     Dosage: SEE IMAGE
     Route: 042
     Dates: start: 20030822
  17. REMICADE [Suspect]
     Indication: RHEUMATOID ARTHRITIS
     Dosage: SEE IMAGE
     Route: 042
     Dates: start: 20030822
  18. REMICADE [Suspect]
     Indication: UVEITIS
     Dosage: SEE IMAGE
     Route: 042
     Dates: start: 20030822
  19. REMICADE [Suspect]
     Indication: ANKYLOSING SPONDYLITIS
     Dosage: SEE IMAGE
     Route: 042
     Dates: start: 20030916
  20. REMICADE [Suspect]
     Indication: RHEUMATOID ARTHRITIS
     Dosage: SEE IMAGE
     Route: 042
     Dates: start: 20030916
  21. REMICADE [Suspect]
     Indication: UVEITIS
     Dosage: SEE IMAGE
     Route: 042
     Dates: start: 20030916
  22. REMICADE [Suspect]
     Indication: ANKYLOSING SPONDYLITIS
     Dosage: SEE IMAGE
     Route: 042
     Dates: start: 20031014
  23. REMICADE [Suspect]
     Indication: RHEUMATOID ARTHRITIS
     Dosage: SEE IMAGE
     Route: 042
     Dates: start: 20031014
  24. REMICADE [Suspect]
     Indication: UVEITIS
     Dosage: SEE IMAGE
     Route: 042
     Dates: start: 20031014
  25. REMICADE [Suspect]
     Indication: ANKYLOSING SPONDYLITIS
     Dosage: SEE IMAGE
     Route: 042
     Dates: start: 20031114
  26. REMICADE [Suspect]
     Indication: RHEUMATOID ARTHRITIS
     Dosage: SEE IMAGE
     Route: 042
     Dates: start: 20031114
  27. REMICADE [Suspect]
     Indication: UVEITIS
     Dosage: SEE IMAGE
     Route: 042
     Dates: start: 20031114
  28. REMICADE [Suspect]
     Indication: ANKYLOSING SPONDYLITIS
     Dosage: SEE IMAGE
     Route: 042
     Dates: start: 20031216
  29. REMICADE [Suspect]
     Indication: RHEUMATOID ARTHRITIS
     Dosage: SEE IMAGE
     Route: 042
     Dates: start: 20031216
  30. REMICADE [Suspect]
     Indication: UVEITIS
     Dosage: SEE IMAGE
     Route: 042
     Dates: start: 20031216
  31. REMICADE [Suspect]
     Indication: ANKYLOSING SPONDYLITIS
     Dosage: SEE IMAGE
     Route: 042
     Dates: start: 20040114
  32. REMICADE [Suspect]
     Indication: RHEUMATOID ARTHRITIS
     Dosage: SEE IMAGE
     Route: 042
     Dates: start: 20040114
  33. REMICADE [Suspect]
     Indication: UVEITIS
     Dosage: SEE IMAGE
     Route: 042
     Dates: start: 20040114
  34. REMICADE [Suspect]
     Indication: ANKYLOSING SPONDYLITIS
     Dosage: SEE IMAGE
     Route: 042
     Dates: start: 20040217
  35. REMICADE [Suspect]
     Indication: RHEUMATOID ARTHRITIS
     Dosage: SEE IMAGE
     Route: 042
     Dates: start: 20040217
  36. REMICADE [Suspect]
     Indication: UVEITIS
     Dosage: SEE IMAGE
     Route: 042
     Dates: start: 20040217
  37. METHOTREXATE [Concomitant]
  38. FOSAMAX [Concomitant]
  39. CELEBREX [Concomitant]
  40. PREDNISONE [Concomitant]
  41. NEXIUM [Concomitant]

REACTIONS (5)
  - CARDIAC ARREST [None]
  - CEREBROVASCULAR ACCIDENT [None]
  - DIARRHOEA [None]
  - HAEMATEMESIS [None]
  - MALAISE [None]
